FAERS Safety Report 9921747 (Version 1)
Quarter: 2014Q1

REPORT INFORMATION
  Report Type: Spontaneous
  Country: US (occurrence: US)
  Receive Date: 20140225
  Receipt Date: 20140225
  Transmission Date: 20141002
  Serious: Yes (Other)
  Sender: FDA-Public Use
  Company Number: US-MYLANLABS-2014S1003231

PATIENT
  Age: 67 Year
  Sex: Female
  Weight: 77.11 kg

DRUGS (4)
  1. SPIRONOLACTONE TABLETS, USP [Suspect]
     Indication: ALOPECIA
     Route: 048
     Dates: start: 201306, end: 201307
  2. SPIRONOLACTONE TABLETS, USP [Suspect]
     Indication: OFF LABEL USE
     Route: 048
     Dates: start: 201306, end: 201307
  3. SPIRONOLACTONE TABLETS, USP [Suspect]
     Indication: ALOPECIA
     Route: 048
     Dates: start: 201307, end: 201307
  4. SPIRONOLACTONE TABLETS, USP [Suspect]
     Indication: OFF LABEL USE
     Route: 048
     Dates: start: 201307, end: 201307

REACTIONS (10)
  - Idiopathic angioedema [Not Recovered/Not Resolved]
  - Deformity [Not Recovered/Not Resolved]
  - Mass [Not Recovered/Not Resolved]
  - Loss of consciousness [Recovered/Resolved]
  - Dehydration [Recovered/Resolved]
  - Rhinitis allergic [Not Recovered/Not Resolved]
  - Flushing [Not Recovered/Not Resolved]
  - Idiopathic urticaria [Not Recovered/Not Resolved]
  - Skin discolouration [Not Recovered/Not Resolved]
  - Adverse event [Not Recovered/Not Resolved]
